FAERS Safety Report 14023322 (Version 1)
Quarter: 2017Q3

REPORT INFORMATION
  Report Type: Spontaneous
  Country: GR (occurrence: GR)
  Receive Date: 20170929
  Receipt Date: 20170929
  Transmission Date: 20171128
  Serious: Yes (Hospitalization)
  Sender: FDA-Public Use
  Company Number: GR-TEVA-809352ISR

PATIENT
  Age: 67 Year
  Sex: Male

DRUGS (1)
  1. CARVEDILOL. [Suspect]
     Active Substance: CARVEDILOL
     Dosage: UNKNOWN

REACTIONS (4)
  - Left ventricular dysfunction [Unknown]
  - Haemodynamic instability [Unknown]
  - Heart rate abnormal [Unknown]
  - Tachycardia induced cardiomyopathy [Unknown]
